FAERS Safety Report 5131383-5 (Version None)
Quarter: 2006Q4

REPORT INFORMATION
  Report Type: 
  Country: None (occurrence: None)
  Receive Date: 20061020
  Receipt Date: 20060831
  Transmission Date: 20070319
  Serious: Yes (Other)
  Sender: FDA-Public Use
  Company Number: US-GLAXOSMITHKLINE-A0618784A

PATIENT
  Age: 14 Year
  Sex: Female
  Weight: 48.6 kg

DRUGS (3)
  1. WELLBUTRIN XL [Suspect]
     Indication: DEPRESSION
     Dosage: 150MG PER DAY
     Route: 048
     Dates: start: 20060101, end: 20060801
  2. ZYRTEC [Concomitant]
  3. CYMBALTA [Concomitant]

REACTIONS (4)
  - CERVICAL ROOT PAIN [None]
  - CONDITION AGGRAVATED [None]
  - CONVULSION [None]
  - HEADACHE [None]
